FAERS Safety Report 18581113 (Version 3)
Quarter: 2020Q4

REPORT INFORMATION
  Report Type: Report from Study
  Country: US (occurrence: US)
  Receive Date: 20201204
  Receipt Date: 20201222
  Transmission Date: 20210114
  Serious: Yes (Hospitalization)
  Sender: FDA-Public Use
  Company Number: US-EISAI MEDICAL RESEARCH-EC-2020-084691

PATIENT
  Age: 76 Year
  Sex: Male

DRUGS (7)
  1. LASIX [Concomitant]
     Active Substance: FUROSEMIDE
  2. LENVIMA [Suspect]
     Active Substance: LENVATINIB
     Route: 048
     Dates: start: 2020, end: 202011
  3. LOSARTAN. [Concomitant]
     Active Substance: LOSARTAN
  4. CLONIDINE. [Concomitant]
     Active Substance: CLONIDINE
  5. LENVIMA [Suspect]
     Active Substance: LENVATINIB
     Route: 048
     Dates: start: 2020
  6. METOPROLOL. [Concomitant]
     Active Substance: METOPROLOL
  7. LENVIMA [Suspect]
     Active Substance: LENVATINIB
     Indication: THYROID CANCER
     Route: 048
     Dates: start: 20200605, end: 20201021

REACTIONS (5)
  - Renal failure [Recovered/Resolved]
  - Incision site discharge [Recovered/Resolved]
  - Oesophageal disorder [Unknown]
  - Gastrostomy tube site complication [Unknown]
  - Oedema [Unknown]

NARRATIVE: CASE EVENT DATE: 20201120
